FAERS Safety Report 10138636 (Version 3)
Quarter: 2014Q2

REPORT INFORMATION
  Report Type: Spontaneous
  Country: FR (occurrence: JP)
  Receive Date: 20140429
  Receipt Date: 20140602
  Transmission Date: 20141212
  Serious: Yes (Life-Threatening, Hospitalization)
  Sender: FDA-Public Use
  Company Number: JP-FRI-1000066840

PATIENT
  Age: 84 Year
  Sex: Male
  Weight: 49 kg

DRUGS (5)
  1. ACAMPROSATE [Suspect]
     Indication: ALCOHOLISM
     Dosage: 1998 MG
     Route: 048
     Dates: start: 20140303, end: 20140317
  2. CYANAMIDE [Suspect]
     Indication: ALCOHOLISM
     Dosage: 30 MG
     Route: 048
     Dates: start: 20140317, end: 20140331
  3. SERMION [Concomitant]
     Dates: start: 20140303, end: 20140414
  4. BLOPRESS [Concomitant]
     Dates: start: 20140303, end: 20140414
  5. ADALAT [Concomitant]
     Dates: start: 20140303, end: 20140414

REACTIONS (1)
  - Renal failure acute [Not Recovered/Not Resolved]
